FAERS Safety Report 9173849 (Version 1)
Quarter: 2013Q1

REPORT INFORMATION
  Report Type: Spontaneous
  Country: US (occurrence: None)
  Receive Date: 20130318
  Receipt Date: 20130318
  Transmission Date: 20140127
  Serious: Yes (Other)
  Sender: FDA-Public Use
  Company Number: None

PATIENT
  Age: 67 Year
  Sex: Male
  Weight: 106.6 kg

DRUGS (1)
  1. IBUPROFEN [Suspect]

REACTIONS (6)
  - Gingival bleeding [None]
  - Intervertebral disc protrusion [None]
  - Haemorrhoids [None]
  - Arthralgia [None]
  - Urine flow decreased [None]
  - Erectile dysfunction [None]
